FAERS Safety Report 5613110-8 (Version None)
Quarter: 2008Q1

REPORT INFORMATION
  Report Type: 
  Country: None (occurrence: None)
  Receive Date: 20080129
  Receipt Date: 20080114
  Transmission Date: 20080703
  Serious: Yes (Hospitalization)
  Sender: FDA-Public Use
  Company Number: US022135

PATIENT
  Age: 30 Year
  Sex: Male
  Weight: 68.0396 kg

DRUGS (7)
  1. ACTIQ [Suspect]
     Indication: ABDOMINAL PAIN UPPER
     Dosage: 600 UG 8D BUCCAL
     Route: 002
     Dates: start: 20040101, end: 20071201
  2. ACTIQ [Suspect]
     Indication: PROCTALGIA
     Dosage: 600 UG 8D BUCCAL
     Route: 002
     Dates: start: 20040101, end: 20071201
  3. FENTANYL [Concomitant]
  4. DEPAKOTE [Concomitant]
  5. GEODON [Concomitant]
  6. CYMBALTA [Concomitant]
  7. VALIUM [Concomitant]

REACTIONS (4)
  - DRUG DETOXIFICATION [None]
  - ERECTILE DYSFUNCTION [None]
  - HOT FLUSH [None]
  - TREMOR [None]
